FAERS Safety Report 5416546-3 (Version None)
Quarter: 2007Q3

REPORT INFORMATION
  Report Type: 
  Country: None (occurrence: None)
  Receive Date: 20070816
  Receipt Date: 20070814
  Transmission Date: 20080115
  Serious: Yes (Hospitalization)
  Sender: FDA-Public Use
  Company Number: US-BAYER-200711555BCC

PATIENT
  Age: 83 Year
  Sex: Female
  Weight: 60 kg

DRUGS (17)
  1. ASPIRIN [Suspect]
     Indication: ISCHAEMIC HEART DISEASE PROPHYLAXIS
     Dosage: TOTAL DAILY DOSE: 81 MG  UNIT DOSE: 81 MG
     Route: 048
     Dates: start: 20060101
  2. VICODIN [Concomitant]
  3. RESTASIS [Concomitant]
  4. PREDNISONE TAB [Concomitant]
  5. DITROPAN XL [Concomitant]
  6. COREG [Concomitant]
  7. INSPRA [Concomitant]
  8. SORBIDE [Concomitant]
  9. PACERONE [Concomitant]
  10. CRESTOR [Concomitant]
  11. LEVOTHYROXINE SODIUM [Concomitant]
  12. ZINC [Concomitant]
  13. CENTRUM SILVER [Concomitant]
  14. IRON FERROUS SULFATE [Concomitant]
  15. PROTOPIC SALVE [Concomitant]
  16. PRILOSEC [Concomitant]
  17. SULFAZINE [Concomitant]

REACTIONS (4)
  - FEELING ABNORMAL [None]
  - MYOCARDIAL INFARCTION [None]
  - PNEUMONIA [None]
  - VIRAL INFECTION [None]
